FAERS Safety Report 5017231-2 (Version None)
Quarter: 2006Q2

REPORT INFORMATION
  Report Type: 
  Country: None (occurrence: None)
  Receive Date: 20060414
  Receipt Date: 20060307
  Transmission Date: 20061013
  Serious: No
  Sender: FDA-Public Use
  Company Number: 2006SP001127

PATIENT
  Age: 53 Year
  Sex: Male
  Weight: 70.3075 kg

DRUGS (17)
  1. LUNESTA [Suspect]
     Indication: INSOMNIA
     Dosage: SEE IMAGE
     Route: 048
     Dates: start: 20051101, end: 20051101
  2. LUNESTA [Suspect]
     Indication: INSOMNIA
     Dosage: SEE IMAGE
     Route: 048
     Dates: start: 20060201, end: 20060101
  3. LUNESTA [Suspect]
     Indication: INSOMNIA
     Dosage: SEE IMAGE
     Route: 048
     Dates: start: 20051101
  4. NORVIR [Concomitant]
  5. LEXIVA [Concomitant]
  6. ZERIT [Concomitant]
  7. COREG [Concomitant]
  8. FUROSIDE [Concomitant]
  9. SUSTIVA [Concomitant]
  10. ATORVASTATIN CALCIUM [Concomitant]
  11. DIGOXIN [Concomitant]
  12. WARFARIN SODIUM [Concomitant]
  13. PLAVIX [Concomitant]
  14. ALTACE [Concomitant]
  15. ISOSORBIDE [Concomitant]
  16. TRICOR [Concomitant]
  17. ASPIRIN [Concomitant]

REACTIONS (3)
  - DRUG INEFFECTIVE [None]
  - DYSGEUSIA [None]
  - INSOMNIA [None]
